FAERS Safety Report 6254257-5 (Version None)
Quarter: 2009Q3

REPORT INFORMATION
  Report Type: 
  Country: None (occurrence: None)
  Receive Date: 20090702
  Receipt Date: 20090624
  Transmission Date: 20100115
  Serious: Yes (Hospitalization)
  Sender: FDA-Public Use
  Company Number: AU-ASTRAZENECA-2009SE03337

PATIENT
  Age: 59 Year
  Sex: Female

DRUGS (6)
  1. NEXIUM [Suspect]
     Route: 048
     Dates: start: 20090123, end: 20090125
  2. CEPHALEXIN [Suspect]
     Dates: start: 20081115
  3. AMOXICILLIN [Suspect]
     Route: 048
     Dates: start: 20080123, end: 20080125
  4. CLARITHROMYCIN [Suspect]
     Dates: start: 20090123, end: 20090125
  5. CEFTRIAXONE [Concomitant]
  6. METRONIDAZOLE [Concomitant]

REACTIONS (5)
  - AUTOIMMUNE HEPATITIS [None]
  - CHOLESTASIS [None]
  - EOSINOPHILIA [None]
  - HEPATIC FAILURE [None]
  - NECROSIS [None]
